FAERS Safety Report 4443276-7 (Version None)
Quarter: 2004Q3

REPORT INFORMATION
  Report Type: 
  Country: None (occurrence: None)
  Receive Date: 20040728
  Receipt Date: 20040325
  Transmission Date: 20050211
  Serious: No
  Sender: FDA-Public Use
  Company Number: USA040363146

PATIENT
  Age: 9 Year
  Sex: Male
  Weight: 31 kg

DRUGS (2)
  1. STRATTERA [Suspect]
     Indication: ATTENTION DEFICIT/HYPERACTIVITY DISORDER
     Dosage: 40 MG DAY
     Dates: start: 20030301
  2. SEROQUEL [Concomitant]

REACTIONS (1)
  - BLOOD GLUCOSE INCREASED [None]
